FAERS Safety Report 16132112 (Version 1)
Quarter: 2019Q2

REPORT INFORMATION
  Report Type: Spontaneous
  Country: US (occurrence: US)
  Receive Date: 20190328
  Receipt Date: 20190328
  Transmission Date: 20190711
  Serious: No
  Sender: FDA-Public Use
  Company Number: None

PATIENT
  Age: 55 Year
  Sex: Female
  Weight: 56 kg

DRUGS (3)
  1. FROVATRIPTAN 2.5MG [Concomitant]
     Dates: start: 20090511
  2. AJOVY [Suspect]
     Active Substance: FREMANEZUMAB-VFRM
     Indication: MIGRAINE
     Dosage: ?          OTHER FREQUENCY:MONTHLY;?
     Route: 058
  3. PROPRANOLOL 10MG [Concomitant]
     Active Substance: PROPRANOLOL HYDROCHLORIDE
     Dates: start: 20161221

REACTIONS (1)
  - Constipation [None]

NARRATIVE: CASE EVENT DATE: 20190201
